FAERS Safety Report 18632432 (Version 1)
Quarter: 2020Q4

REPORT INFORMATION
  Report Type: Spontaneous
  Country: GB (occurrence: GB)
  Receive Date: 20201218
  Receipt Date: 20201218
  Transmission Date: 20210114
  Serious: Yes (Other)
  Sender: FDA-Public Use
  Company Number: GB-TEVA-2020-GB-1858959

PATIENT
  Age: 66 Year
  Sex: Female
  Weight: 92.52 kg

DRUGS (18)
  1. MEBEVERINE [Concomitant]
     Active Substance: MEBEVERINE
  2. INDAPAMIDE. [Concomitant]
     Active Substance: INDAPAMIDE
  3. STERI-NEB SALBUTAMOL [Concomitant]
  4. VENTOLIN [Concomitant]
     Active Substance: ALBUTEROL SULFATE
  5. CARMELLOSE [Concomitant]
     Active Substance: CARBOXYMETHYLCELLULOSE
  6. TRAMADOL. [Concomitant]
     Active Substance: TRAMADOL
  7. GLYCERYL TRINITRATE [Concomitant]
     Active Substance: NITROGLYCERIN
  8. ACETYLSALICYLIC ACID [Concomitant]
     Active Substance: ASPIRIN
  9. GAVISCON [Concomitant]
     Active Substance: ALUMINUM HYDROXIDE\MAGNESIUM CARBONATE
  10. VOLTAROL [Concomitant]
     Active Substance: DICLOFENAC SODIUM
  11. OMEPRAZOLE. [Suspect]
     Active Substance: OMEPRAZOLE
     Indication: GASTRIC ULCER
     Dosage: 80MG
     Route: 048
     Dates: start: 20201106, end: 20201117
  12. CETIRIZINE [Concomitant]
     Active Substance: CETIRIZINE HYDROCHLORIDE
  13. FYBOGEL [Concomitant]
     Active Substance: PLANTAGO OVATA SEED
  14. MONTELUKAST [Concomitant]
     Active Substance: MONTELUKAST SODIUM
  15. SIMVASTATIN. [Concomitant]
     Active Substance: SIMVASTATIN
  16. SEREFLO [Concomitant]
     Active Substance: FLUTICASONE PROPIONATE\SALMETEROL XINAFOATE
  17. LOPERAMIDE [Concomitant]
     Active Substance: LOPERAMIDE
  18. PARACETAMOL [Concomitant]
     Active Substance: ACETAMINOPHEN

REACTIONS (7)
  - Flatulence [Recovered/Resolved]
  - Joint swelling [Recovered/Resolved]
  - Illness [Recovered/Resolved]
  - Dyspepsia [Recovered/Resolved with Sequelae]
  - Arthralgia [Recovered/Resolved]
  - Nausea [Recovered/Resolved]
  - Abdominal pain [Recovered/Resolved]

NARRATIVE: CASE EVENT DATE: 20201107
